FAERS Safety Report 4965337-6 (Version None)
Quarter: 2006Q2

REPORT INFORMATION
  Report Type: 
  Country: None (occurrence: None)
  Receive Date: 20060406
  Receipt Date: 20051025
  Transmission Date: 20061013
  Serious: Yes (Hospitalization, Disabling, Other)
  Sender: FDA-Public Use
  Company Number: US-MERCK-0510USA09198

PATIENT
  Age: 65 Year
  Sex: Female
  Weight: 136 kg

DRUGS (5)
  1. VIOXX [Suspect]
     Indication: RHEUMATOID ARTHRITIS
     Route: 048
     Dates: start: 19990801, end: 20000101
  2. VIOXX [Suspect]
     Route: 048
     Dates: start: 20000301, end: 20000531
  3. ZOLOFT [Concomitant]
     Indication: DEPRESSION
     Route: 065
  4. LASIX [Concomitant]
     Indication: FLUID RETENTION
     Route: 065
     Dates: start: 19850101, end: 20030101
  5. LIPITOR [Concomitant]
     Indication: HYPERCHOLESTEROLAEMIA
     Route: 065
     Dates: start: 19850101, end: 20020101

REACTIONS (10)
  - ARTERIAL REPAIR [None]
  - BACK PAIN [None]
  - DEEP VEIN THROMBOSIS [None]
  - GALLBLADDER DISORDER [None]
  - GOUT [None]
  - HYPERTENSION [None]
  - HYPOXIA [None]
  - LACERATION [None]
  - PANCREATITIS [None]
  - PULMONARY EMBOLISM [None]
